FAERS Safety Report 8759617 (Version 1)
Quarter: 2012Q4

REPORT INFORMATION
  Report Type: 
  Country: US (occurrence: US)
  Receive Date: 20120829
  Receipt Date: 20120829
  Transmission Date: 20130627
  Serious: No
  Sender: FDA-Public Use
  Company Number: US-GLAXOSMITHKLINE-A0936303A

PATIENT
  Age: 47 Year
  Sex: Male

DRUGS (4)
  1. MALARONE [Suspect]
     Indication: MALARIA PROPHYLAXIS
     Dosage: 1TAB Per day
     Route: 048
     Dates: start: 20110703, end: 20110707
  2. OMEGA 3 FATTY ACIDS [Concomitant]
  3. FLUOXETINE [Concomitant]
  4. OXCARBAZEPINE [Concomitant]

REACTIONS (7)
  - Nausea [Recovered/Resolved]
  - Dizziness [Unknown]
  - Diarrhoea [Unknown]
  - Hyperhidrosis [Unknown]
  - Feeling hot [Unknown]
  - Malaise [Unknown]
  - Headache [Unknown]
